FAERS Safety Report 4501783-2 (Version None)
Quarter: 2004Q3

REPORT INFORMATION
  Report Type: 
  Country: None (occurrence: None)
  Receive Date: 20040928
  Receipt Date: 20040709
  Transmission Date: 20050211
  Serious: No
  Sender: FDA-Public Use
  Company Number: 04P-163-0254704-00

PATIENT
  Age: 62 Year
  Sex: Female
  Weight: 52.1637 kg

DRUGS (15)
  1. HUMIRA [Suspect]
     Indication: RHEUMATOID ARTHRITIS
     Dosage: 40 MG, 1 IN 2 WK, SUBCUTANEOUS
     Route: 058
     Dates: start: 20031121
  2. LEFLUNOMIDE [Concomitant]
  3. NIFEDIPINE [Concomitant]
  4. ESTROPIPATE [Concomitant]
  5. PENTOXIFYLLINE [Concomitant]
  6. SALSATE [Concomitant]
  7. TOCOPHEROL CONCENTRATE CAP [Concomitant]
  8. CALCIUM [Concomitant]
  9. FAMOTIDINE [Concomitant]
  10. FERROUS SULFATE TAB [Concomitant]
  11. HYDROCHLOROTHIAZIDE [Concomitant]
  12. POTASSIUM CHLORIDE [Concomitant]
  13. ATENOLOL [Concomitant]
  14. ALENDRONATE SODIUM [Concomitant]
  15. DEXTROPROPOXYPHENE NAPSILATE [Concomitant]

REACTIONS (3)
  - ALOPECIA [None]
  - INJECTION SITE RASH [None]
  - INJECTION SITE STINGING [None]
